FAERS Safety Report 24013083 (Version 1)
Quarter: 2024Q2

REPORT INFORMATION
  Report Type: Report from Study
  Country: US (occurrence: US)
  Receive Date: 20240626
  Receipt Date: 20240626
  Transmission Date: 20240716
  Serious: Yes (Disabling, Other)
  Sender: FDA-Public Use
  Company Number: US-SANDOZ-SDZ2024US059770

PATIENT
  Sex: Female

DRUGS (1)
  1. HYRIMOZ [Suspect]
     Active Substance: ADALIMUMAB-ADAZ
     Indication: Rheumatoid arthritis
     Dosage: 40 MG QW
     Route: 058
     Dates: start: 202404

REACTIONS (6)
  - Dysstasia [Unknown]
  - Condition aggravated [Unknown]
  - Balance disorder [Unknown]
  - Gait disturbance [Unknown]
  - Migraine [Unknown]
  - Drug hypersensitivity [Unknown]
